FAERS Safety Report 20179394 (Version 1)
Quarter: 2021Q4

REPORT INFORMATION
  Report Type: Spontaneous
  Country: FR (occurrence: FR)
  Receive Date: 20211214
  Receipt Date: 20211214
  Transmission Date: 20220303
  Serious: Yes (Hospitalization, Congenital Anomaly, Other)
  Sender: FDA-Public Use
  Company Number: FR-ABBVIE-21K-056-4193263-00

PATIENT
  Sex: Male

DRUGS (2)
  1. VALPROATE SODIUM [Suspect]
     Active Substance: VALPROATE SODIUM
     Indication: Maternal exposure timing unspecified
     Route: 064
     Dates: start: 20011012
  2. VALPROATE SODIUM [Suspect]
     Active Substance: VALPROATE SODIUM
     Route: 064

REACTIONS (15)
  - Behaviour disorder [Unknown]
  - Disturbance in attention [Unknown]
  - Motor dysfunction [Unknown]
  - Intellectual disability [Unknown]
  - Dysmorphism [Unknown]
  - Language disorder [Unknown]
  - Intellectual disability [Unknown]
  - Developmental delay [Unknown]
  - Schizophrenia [Unknown]
  - Cryptorchism [Unknown]
  - Ear, nose and throat disorder [Unknown]
  - Ear, nose and throat disorder [Unknown]
  - Ear, nose and throat disorder [Unknown]
  - Gastrooesophageal reflux disease [Unknown]
  - Foetal exposure during pregnancy [Unknown]

NARRATIVE: CASE EVENT DATE: 20020619
